FAERS Safety Report 7956773-4 (Version None)
Quarter: 2011Q4

REPORT INFORMATION
  Report Type: 
  Country: None (occurrence: None)
  Receive Date: 20111205
  Receipt Date: 20111128
  Transmission Date: 20120403
  Serious: Yes (Life-Threatening, Hospitalization)
  Sender: FDA-Public Use
  Company Number: US-SHIRE-ALL1-2011-04690

PATIENT
  Sex: Female

DRUGS (4)
  1. DEXTROAMPHETAMINE [Suspect]
     Indication: HEAD INJURY
     Dosage: 10 MG, UNKNOWN
     Route: 065
  2. AMPHETAMINE AND DEXTROAMPHETAMINE SALTS [Suspect]
     Indication: DISTURBANCE IN ATTENTION
  3. AMPHETAMINE AND DEXTROAMPHETAMINE SALTS [Suspect]
     Indication: HEAD INJURY
     Dosage: 20 MG, UNKNOWN
     Route: 065
  4. DEXTROAMPHETAMINE [Suspect]
     Indication: DISTURBANCE IN ATTENTION

REACTIONS (6)
  - MALAISE [None]
  - ADVERSE EVENT [None]
  - NAUSEA [None]
  - DISTURBANCE IN ATTENTION [None]
  - BLOOD COUNT ABNORMAL [None]
  - IRRITABILITY [None]
